FAERS Safety Report 17547408 (Version 2)
Quarter: 2020Q2

REPORT INFORMATION
  Report Type: Spontaneous
  Country: FR (occurrence: FR)
  Receive Date: 20200317
  Receipt Date: 20200410
  Transmission Date: 20200713
  Serious: Yes (Death)
  Sender: FDA-Public Use
  Company Number: FR-SUN PHARMACEUTICAL INDUSTRIES LTD-2020RR-240414

PATIENT
  Age: 51 Year
  Sex: Male
  Weight: 80 kg

DRUGS (9)
  1. IFOSFAMIDE. [Suspect]
     Active Substance: IFOSFAMIDE
     Indication: TESTICULAR CANCER METASTATIC
     Dosage: 4000 MILLIGRAM, DAILY
     Route: 041
     Dates: start: 20191028, end: 20200112
  2. OLANZAPINE. [Suspect]
     Active Substance: OLANZAPINE
     Indication: NAUSEA
     Dosage: 5 MILLIGRAMS, DAILY
     Route: 048
     Dates: start: 20200108, end: 20200112
  3. CISPLATINE [Suspect]
     Active Substance: CISPLATIN
     Indication: TESTICULAR CANCER METASTATIC
     Dosage: 41 MILLIGRAM, DAILY
     Route: 041
     Dates: start: 20191028, end: 20200112
  4. NEBIVOLOL. [Suspect]
     Active Substance: NEBIVOLOL
     Indication: HYPERTENSION
     Dosage: 10 MILLIGRAM, DAILY
     Route: 048
  5. OXALIPLATIN. [Suspect]
     Active Substance: OXALIPLATIN
     Indication: TESTICULAR CANCER METASTATIC
     Dosage: 130 MILLIGRAM/SQ. METER/ 20 DAYS
     Route: 041
     Dates: start: 20191107, end: 20191127
  6. BLEOMYCINE [Suspect]
     Active Substance: BLEOMYCIN SULFATE
     Indication: TESTICULAR CANCER METASTATIC
     Dosage: SELON CYCLE
     Route: 041
     Dates: start: 20191028, end: 20200112
  7. ONDANSETRON [Suspect]
     Active Substance: ONDANSETRON
     Indication: NAUSEA
     Dosage: 16 MILLIGRAM, DAILY
     Route: 048
     Dates: start: 20200108, end: 20200112
  8. LERCANIDIPINE [Suspect]
     Active Substance: LERCANIDIPINE
     Indication: HYPERTENSION
     Dosage: 10 MILLIGRAM, DAILY
     Route: 048
  9. PACLITAXEL. [Suspect]
     Active Substance: PACLITAXEL
     Indication: TESTICULAR CANCER METASTATIC
     Dosage: 175 MILLIGRAM/SQ. METER, 1 DOSE/3 WEEKS
     Route: 041
     Dates: start: 20191028, end: 20191118

REACTIONS (3)
  - Acute respiratory distress syndrome [Fatal]
  - Dyspnoea [Not Recovered/Not Resolved]
  - Pyrexia [Not Recovered/Not Resolved]

NARRATIVE: CASE EVENT DATE: 20200113
